FAERS Safety Report 8471964-4 (Version None)
Quarter: 2012Q2

REPORT INFORMATION
  Report Type: 
  Country: None (occurrence: None)
  Receive Date: 20120627
  Receipt Date: 20120615
  Transmission Date: 20120825
  Serious: Yes (Hospitalization)
  Sender: FDA-Public Use
  Company Number: US-BAYER-2011-110414

PATIENT
  Age: 34 Year
  Sex: Female
  Weight: 88 kg

DRUGS (2)
  1. MIRENA [Suspect]
     Indication: MENSTRUAL DISORDER
  2. MIRENA [Suspect]
     Indication: CONTRACEPTION
     Dosage: 20 ?G, CONT
     Route: 015
     Dates: start: 20110901, end: 20111024

REACTIONS (7)
  - PANIC ATTACK [None]
  - WEIGHT DECREASED [None]
  - DECREASED APPETITE [None]
  - BACK PAIN [None]
  - ABDOMINAL PAIN [None]
  - ANXIETY [None]
  - DEPRESSION [None]
